FAERS Safety Report 7343529-9 (Version None)
Quarter: 2011Q1

REPORT INFORMATION
  Report Type: 
  Country: None (occurrence: None)
  Receive Date: 20110310
  Receipt Date: 20100406
  Transmission Date: 20110831
  Serious: No
  Sender: FDA-Public Use
  Company Number: A0853678A

PATIENT
  Age: 50 Year
  Sex: Female

DRUGS (1)
  1. NICOTINE POLACRILEX [Suspect]
     Dates: start: 20100319

REACTIONS (3)
  - EXPIRED DRUG ADMINISTERED [None]
  - ERUCTATION [None]
  - THROAT TIGHTNESS [None]
